FAERS Safety Report 25483941 (Version 1)
Quarter: 2025Q2

REPORT INFORMATION
  Report Type: Spontaneous
  Country: FR (occurrence: FR)
  Receive Date: 20250626
  Receipt Date: 20250626
  Transmission Date: 20250716
  Serious: Yes (Hospitalization, Other)
  Sender: PFIZER
  Company Number: None

PATIENT
  Age: 50 Year
  Sex: Female
  Weight: 61.2 kg

DRUGS (7)
  1. CYTARABINE [Suspect]
     Active Substance: CYTARABINE
     Indication: Acute myeloid leukaemia
     Dosage: 348 MG, 1X/DAY (200MG/M? IVSE)
     Route: 042
     Dates: start: 20250401, end: 20250407
  2. CYTARABINE [Suspect]
     Active Substance: CYTARABINE
     Dosage: 40 MG, 1X/DAY
     Route: 037
     Dates: start: 20250430, end: 20250430
  3. CYTARABINE [Suspect]
     Active Substance: CYTARABINE
     Dosage: 2.5 MG, 1X/DAY (1.5MG/M? IVSE)
     Route: 042
     Dates: start: 20250519, end: 20250522
  4. DAUNORUBICIN [Suspect]
     Active Substance: DAUNORUBICIN
     Indication: Acute myeloid leukaemia
     Dosage: 156.6 MG, 1X/DAY (90MG/M? IVSE)
     Route: 042
     Dates: start: 20250401, end: 20250403
  5. METHOTREXATE [Concomitant]
     Active Substance: METHOTREXATE
     Indication: Acute myeloid leukaemia
     Dosage: 15 MG, 1X/DAY
     Route: 037
     Dates: start: 20250430, end: 20250430
  6. DEPO-MEDROL [Concomitant]
     Active Substance: METHYLPREDNISOLONE ACETATE
     Indication: Acute myeloid leukaemia
     Dosage: 40 MG, 1X/DAY
     Route: 037
     Dates: start: 20250430, end: 20250430
  7. DESOGESTREL [Concomitant]
     Active Substance: DESOGESTREL
     Indication: Intermenstrual bleeding
     Dosage: 1 DF, 1X/DAY
     Route: 048
     Dates: start: 2023

REACTIONS (1)
  - Myocarditis [Recovered/Resolved]

NARRATIVE: CASE EVENT DATE: 20250521
